FAERS Safety Report 7225229-9 (Version None)
Quarter: 2011Q1

REPORT INFORMATION
  Report Type: 
  Country: None (occurrence: None)
  Receive Date: 20110113
  Receipt Date: 20110112
  Transmission Date: 20110831
  Serious: Yes (Hospitalization)
  Sender: FDA-Public Use
  Company Number: A0905437A

PATIENT
  Age: 60 Year
  Sex: Female

DRUGS (2)
  1. UNKNOWN [Concomitant]
  2. PROMACTA [Suspect]
     Dosage: 50MG PER DAY
     Route: 048
     Dates: start: 20100701

REACTIONS (1)
  - HOSPITALISATION [None]
